FAERS Safety Report 5637759-1 (Version None)
Quarter: 2008Q1

REPORT INFORMATION
  Report Type: 
  Country: None (occurrence: None)
  Receive Date: 20080219
  Receipt Date: 20080213
  Transmission Date: 20080703
  Serious: Yes (Death, Hospitalization)
  Sender: FDA-Public Use
  Company Number: 163-21880-07120682

PATIENT
  Age: 48 Year
  Sex: Female

DRUGS (3)
  1. REVLIMID [Suspect]
     Indication: MULTIPLE MYELOMA
     Dosage: 25 MG, QD X 21 DAYS, ORAL; 15 MG, QD, ORAL; 25 MG, QD, ORAL
     Route: 048
     Dates: start: 20060824, end: 20070119
  2. REVLIMID [Suspect]
     Indication: MULTIPLE MYELOMA
     Dosage: 25 MG, QD X 21 DAYS, ORAL; 15 MG, QD, ORAL; 25 MG, QD, ORAL
     Route: 048
     Dates: start: 20070220, end: 20071016
  3. REVLIMID [Suspect]
     Indication: MULTIPLE MYELOMA
     Dosage: 25 MG, QD X 21 DAYS, ORAL; 15 MG, QD, ORAL; 25 MG, QD, ORAL
     Route: 048
     Dates: start: 20071024

REACTIONS (1)
  - RESPIRATORY DISORDER [None]
